FAERS Safety Report 4569659-2 (Version None)
Quarter: 2005Q1

REPORT INFORMATION
  Report Type: 
  Country: None (occurrence: None)
  Receive Date: 20050201
  Receipt Date: 20050117
  Transmission Date: 20050727
  Serious: Yes (Hospitalization, Other)
  Sender: FDA-Public Use
  Company Number: 2005016385

PATIENT
  Age: 50 Year
  Sex: Female

DRUGS (1)
  1. BEXTRA [Suspect]
     Indication: OSTEOARTHRITIS
     Dosage: 20 MG (1 D); UNKNOWN
     Dates: start: 20041201, end: 20041201

REACTIONS (2)
  - DERMATITIS [None]
  - EPIGLOTTIC OEDEMA [None]
